FAERS Safety Report 14401225 (Version 2)
Quarter: 2018Q1

REPORT INFORMATION
  Report Type: Spontaneous
  Country: US (occurrence: US)
  Receive Date: 20180117
  Receipt Date: 20180330
  Transmission Date: 20180509
  Serious: No
  Sender: FDA-Public Use
  Company Number: US-PFIZER INC-2018018176

PATIENT
  Age: 49 Year
  Sex: Female

DRUGS (1)
  1. IBRANCE [Suspect]
     Active Substance: PALBOCICLIB
     Indication: BREAST CANCER FEMALE
     Dosage: 125 MG, CYCLIC (ONCE DAILY FOR 21 DAYS OFF 7)
     Route: 048
     Dates: start: 201709

REACTIONS (3)
  - Dry skin [Unknown]
  - Discomfort [Unknown]
  - Alopecia [Unknown]

NARRATIVE: CASE EVENT DATE: 20171101
